FAERS Safety Report 5903534-3 (Version None)
Quarter: 2008Q3

REPORT INFORMATION
  Report Type: 
  Country: None (occurrence: None)
  Receive Date: 20080919
  Receipt Date: 20080820
  Transmission Date: 20090109
  Serious: No
  Sender: FDA-Public Use
  Company Number: US-WYE-H05663008

PATIENT
  Age: 43 Year
  Sex: Female
  Weight: 67.19 kg

DRUGS (4)
  1. PRISTIQ [Suspect]
     Indication: DEPRESSION
     Dosage: 100 MG 1X PER 1 DAY, ORAL
     Route: 048
     Dates: start: 20080816
  2. ADDERALL (AMFETAMINE ASPARTATE/AMFETAMINE SULFATE/DEXAMFETAMIN SACCHAR [Concomitant]
  3. STRATTERA [Concomitant]
  4. SYNTHROID [Concomitant]

REACTIONS (5)
  - ASTHENIA [None]
  - DISORIENTATION [None]
  - DRUG WITHDRAWAL SYNDROME [None]
  - FATIGUE [None]
  - TREMOR [None]
